FAERS Safety Report 5025451-6 (Version None)
Quarter: 2006Q2

REPORT INFORMATION
  Report Type: 
  Country: None (occurrence: None)
  Receive Date: 20060608
  Receipt Date: 20060526
  Transmission Date: 20061013
  Serious: Yes (Hospitalization, Other)
  Sender: FDA-Public Use
  Company Number: 2005161708

PATIENT
  Age: 51 Year
  Sex: Male
  Weight: 97.5234 kg

DRUGS (6)
  1. CELEBREX [Suspect]
     Indication: PAIN
  2. BEXTRA [Suspect]
     Indication: PAIN
     Dosage: 20 MG (20 MG, 1 IN 1 D),
     Dates: start: 20040601, end: 20041001
  3. VIOXX [Suspect]
     Indication: ILL-DEFINED DISORDER
  4. HYDROCHLOROTHIAZIDE [Concomitant]
  5. METHOCARBAMOL [Concomitant]
  6. SIMVASTATIN [Concomitant]

REACTIONS (7)
  - BUNDLE BRANCH BLOCK [None]
  - CARDIOMEGALY [None]
  - CARDIOVASCULAR DISORDER [None]
  - ELECTROCARDIOGRAM ABNORMAL [None]
  - FURUNCLE [None]
  - STEVENS-JOHNSON SYNDROME [None]
  - THROMBOSIS [None]
